FAERS Safety Report 5627193-2 (Version None)
Quarter: 2008Q1

REPORT INFORMATION
  Report Type: 
  Country: None (occurrence: None)
  Receive Date: 20080212
  Receipt Date: 20080212
  Transmission Date: 20080703
  Serious: Yes (Other)
  Sender: FDA-Public Use
  Company Number: None

PATIENT
  Age: 61 Year
  Sex: Female
  Weight: 56.246 kg

DRUGS (1)
  1. ACTONEL [Suspect]

REACTIONS (3)
  - BACK PAIN [None]
  - CRYING [None]
  - MOVEMENT DISORDER [None]
